FAERS Safety Report 8993317 (Version 4)
Quarter: 2013Q1

REPORT INFORMATION
  Report Type: Spontaneous
  Country: US (occurrence: US)
  Receive Date: 20130102
  Receipt Date: 20130301
  Transmission Date: 20140127
  Serious: No
  Sender: FDA-Public Use
  Company Number: US-PFIZER INC-2012332647

PATIENT
  Age: 71 Year
  Sex: Female
  Weight: 70.3 kg

DRUGS (10)
  1. CHANTIX [Suspect]
     Indication: SMOKING CESSATION THERAPY
     Dosage: 1 MG, 2X/DAY
     Route: 048
  2. CLONIDINE [Concomitant]
     Indication: BLOOD PRESSURE ABNORMAL
     Dosage: 0.1 MG, 2X/DAY (TWO TABLETS IN DAY AND THREE TABLETS AT NIGHT)
  3. AMLODIPINE [Concomitant]
     Dosage: 10 UNK, UNK
  4. LEVOTHYROXINE [Concomitant]
     Dosage: 112 UNK, UNK
  5. KRILL OIL [Concomitant]
     Dosage: UNK
  6. GRAPE SEED [Concomitant]
     Dosage: UNK
  7. RESVERATROL [Concomitant]
     Dosage: UNK
  8. FOCUS FACTOR [Concomitant]
     Dosage: UNK
  9. CRANBERRY [Concomitant]
     Dosage: UNK
  10. CALCIUM CHEWABLE [Concomitant]
     Dosage: UNK

REACTIONS (2)
  - Nightmare [Recovered/Resolved]
  - Abnormal dreams [Recovered/Resolved]
